FAERS Safety Report 8872321 (Version 1)
Quarter: 2012Q4

REPORT INFORMATION
  Report Type: 
  Country: US (occurrence: US)
  Receive Date: 20121026
  Receipt Date: 20121026
  Transmission Date: 20130627
  Serious: No
  Sender: FDA-Public Use
  Company Number: US-AMGEN-USASP2012049233

PATIENT
  Sex: Female

DRUGS (7)
  1. ENBREL [Suspect]
     Indication: PRODUCT USED FOR UNKNOWN INDICATION
     Dosage: 50 mg/ml, qwk
  2. NEXIUM                             /01479302/ [Concomitant]
     Dosage: 20 mg, UNK
  3. XANAX [Concomitant]
     Dosage: 1 mg, UNK
  4. LEVOTHYROXIN [Concomitant]
  5. MOBIC [Concomitant]
     Dosage: 15 mg, UNK
  6. TRAZODONE [Concomitant]
     Dosage: 100 mg, UNK
  7. AMLODIPIN                          /00972401/ [Concomitant]
     Dosage: 10 mg, UNK

REACTIONS (1)
  - Migraine [Unknown]
